FAERS Safety Report 13004507 (Version 1)
Quarter: 2016Q4

REPORT INFORMATION
  Report Type: Spontaneous
  Country: IT (occurrence: IT)
  Receive Date: 20161207
  Receipt Date: 20161207
  Transmission Date: 20170207
  Serious: Yes (Death)
  Sender: FDA-Public Use
  Company Number: IT-ROCHE-1863925

PATIENT
  Age: 93 Year
  Sex: Female

DRUGS (1)
  1. VALIUM [Suspect]
     Active Substance: DIAZEPAM
     Indication: PRODUCT USED FOR UNKNOWN INDICATION
     Route: 065
     Dates: start: 20140101, end: 20140101

REACTIONS (2)
  - Cardiac arrest [Fatal]
  - Intentional product misuse [Fatal]

NARRATIVE: CASE EVENT DATE: 20140101
